FAERS Safety Report 6303671-8 (Version None)
Quarter: 2009Q3

REPORT INFORMATION
  Report Type: 
  Country: None (occurrence: None)
  Receive Date: 20090810
  Receipt Date: 20090803
  Transmission Date: 20100115
  Serious: Yes (Death)
  Sender: FDA-Public Use
  Company Number: US-GILEAD-2009-0023465

PATIENT
  Sex: Male
  Weight: 81.72 kg

DRUGS (9)
  1. LETAIRIS [Suspect]
     Indication: PULMONARY ARTERIAL HYPERTENSION
     Route: 048
     Dates: start: 20070828
  2. PREDNISONE TAB [Concomitant]
  3. DUONEB [Concomitant]
  4. METFORMIN HCL [Concomitant]
  5. XANAX [Concomitant]
  6. HUMULIN R [Concomitant]
  7. FOLIC ACID [Concomitant]
  8. K-DUR [Concomitant]
  9. VALTREX [Concomitant]

REACTIONS (1)
  - DEATH [None]
